FAERS Safety Report 10067770 (Version 1)
Quarter: 2014Q2

REPORT INFORMATION
  Report Type: Report from Study
  Country: MX (occurrence: MX)
  Receive Date: 20140409
  Receipt Date: 20140409
  Transmission Date: 20141212
  Serious: Yes (Hospitalization, Other)
  Sender: FDA-Public Use
  Company Number: PHHY2014MX042648

PATIENT
  Age: 67 Year
  Sex: Female

DRUGS (5)
  1. EXFORGE [Suspect]
     Indication: HYPERTENSION
     Dosage: 0.5 DF (160/5 MG), DAILY
     Route: 048
     Dates: start: 201108, end: 201312
  2. EUTEBROL [Concomitant]
     Indication: DEMENTIA ALZHEIMER^S TYPE
     Dosage: 2 DF, DAILY
     Dates: start: 201108, end: 201401
  3. AKATINOL [Concomitant]
     Indication: DEMENTIA ALZHEIMER^S TYPE
     Dosage: 1 DF, DAILY
     Dates: start: 201108, end: 201402
  4. RISPERIDONE [Concomitant]
     Indication: ANXIOLYTIC THERAPY
     Dosage: 0.5 DF, DAILY
     Dates: start: 2011
  5. METFORMIN [Concomitant]
     Indication: DIABETES MELLITUS
     Dosage: 1.5 DF, DAILY
     Dates: start: 2011, end: 201403

REACTIONS (5)
  - Gastrointestinal obstruction [Unknown]
  - Apallic syndrome [Unknown]
  - Abasia [Unknown]
  - Functional gastrointestinal disorder [Unknown]
  - Wrong technique in drug usage process [Recovered/Resolved]
